FAERS Safety Report 17388297 (Version 4)
Quarter: 2020Q2

REPORT INFORMATION
  Report Type: Report from Study
  Country: DE (occurrence: DE)
  Receive Date: 20200206
  Receipt Date: 20200518
  Transmission Date: 20200713
  Serious: Yes (Death, Hospitalization)
  Sender: FDA-Public Use
  Company Number: DE-ACTELION-A-US2020-201513

PATIENT
  Age: 63 Year
  Sex: Female

DRUGS (4)
  1. VENTAVIS [Suspect]
     Active Substance: ILOPROST
     Dosage: 20 ?G, 6ID
     Route: 055
     Dates: start: 20200204
  2. VENTAVIS [Suspect]
     Active Substance: ILOPROST
     Dosage: 2.5 MCG, 6ID
     Route: 055
     Dates: start: 201810, end: 202002
  3. VENTAVIS [Suspect]
     Active Substance: ILOPROST
     Dosage: 10 UG/ML
     Route: 055
     Dates: start: 201810, end: 202002
  4. VENTAVIS [Suspect]
     Active Substance: ILOPROST
     Indication: PULMONARY ARTERIAL HYPERTENSION
     Dosage: 5 UNK, 6ID
     Route: 055
     Dates: start: 20200204, end: 20200425

REACTIONS (2)
  - Generalised oedema [Fatal]
  - Oedema peripheral [Fatal]
